FAERS Safety Report 11537764 (Version 1)
Quarter: 2015Q3

REPORT INFORMATION
  Report Type: Other
  Country: US (occurrence: US)
  Receive Date: 20150922
  Receipt Date: 20150922
  Transmission Date: 20151125
  Serious: Yes (Hospitalization)
  Sender: FDA-Public Use
  Company Number: US-MYLANLABS-2015M1031351

PATIENT

DRUGS (1)
  1. VALSARTAN TABLETS, USP [Suspect]
     Active Substance: VALSARTAN

REACTIONS (2)
  - Myocardial infarction [Unknown]
  - Dyspnoea [Unknown]
